FAERS Safety Report 9660683 (Version 1)
Quarter: 2013Q4

REPORT INFORMATION
  Report Type: Spontaneous
  Country: NL (occurrence: NL)
  Receive Date: 20131031
  Receipt Date: 20131031
  Transmission Date: 20140711
  Serious: Yes (Hospitalization)
  Sender: FDA-Public Use
  Company Number: NL-IPSEN BIOPHARMACEUTICALS, INC.-2013-4654

PATIENT
  Age: 64 Year
  Sex: Male

DRUGS (2)
  1. SOMATULINE AUTOSOLUTION 120MG [Suspect]
     Indication: ACROMEGALY
     Dosage: 120 MG
     Route: 058
     Dates: start: 20110531, end: 20130919
  2. SOMATULINE AUTOSOLUTION 120MG [Suspect]
     Dosage: 120 MG
     Route: 058
     Dates: start: 20131018

REACTIONS (1)
  - Gastrointestinal neoplasm [Recovering/Resolving]
